FAERS Safety Report 5715718-8 (Version None)
Quarter: 2008Q2

REPORT INFORMATION
  Report Type: 
  Country: None (occurrence: None)
  Receive Date: 20080423
  Receipt Date: 20080423
  Transmission Date: 20081010
  Serious: Yes (Life-Threatening, Hospitalization)
  Sender: FDA-Public Use
  Company Number: None

PATIENT
  Age: 76 Year
  Sex: Male
  Weight: 96.4 kg

DRUGS (3)
  1. EPTIFIBATIDE [Suspect]
     Indication: ANGIOPLASTY
     Dates: start: 20080314, end: 20080314
  2. EPTIFIBATIDE [Suspect]
     Indication: ANTIPLATELET THERAPY
     Dates: start: 20080314, end: 20080314
  3. HEPARIN [Suspect]
     Indication: ANTICOAGULANT THERAPY
     Dosage: 7500 UNITS ONCE IV
     Route: 042
     Dates: start: 20080314, end: 20080314

REACTIONS (5)
  - BRADYCARDIA [None]
  - CONTRAINDICATION TO MEDICAL TREATMENT [None]
  - HAEMATOMA [None]
  - HYPOTENSION [None]
  - UPPER GASTROINTESTINAL HAEMORRHAGE [None]
